FAERS Safety Report 10203394 (Version 1)
Quarter: 2014Q2

REPORT INFORMATION
  Report Type: Spontaneous
  Country: CH (occurrence: CH)
  Receive Date: 20140529
  Receipt Date: 20140529
  Transmission Date: 20141212
  Serious: Yes (Death, Hospitalization)
  Sender: FDA-Public Use
  Company Number: CH-CELGENEUS-151-21660-14052534

PATIENT
  Age: 47 Year
  Sex: Female
  Weight: 47 kg

DRUGS (8)
  1. ABRAXANE [Suspect]
     Indication: PANCREATIC CARCINOMA
     Route: 041
     Dates: start: 20140401, end: 20140429
  2. RITALIN [Concomitant]
     Indication: FATIGUE
     Dosage: 20 MILLIGRAM
     Route: 065
  3. XARELTO [Concomitant]
     Indication: THROMBOSIS
     Dosage: 20 MILLIGRAM
     Route: 065
  4. PANTOZOL [Concomitant]
     Indication: PRODUCT USED FOR UNKNOWN INDICATION
     Dosage: 80 MILLIGRAM
     Route: 065
  5. VOLTAREN [Concomitant]
     Indication: PANCREATIC CARCINOMA
     Dosage: 150 MILLIGRAM
     Route: 065
  6. METHADON [Concomitant]
     Indication: PANCREATIC CARCINOMA
     Dosage: 90 MILLIGRAM/MILLILITERS
     Route: 065
  7. FENTANYL [Concomitant]
     Indication: PANCREATIC CARCINOMA
     Dosage: 25 MILLIGRAM
     Route: 065
  8. EFFENTOR [Concomitant]
     Indication: PANCREATIC CARCINOMA
     Route: 065

REACTIONS (2)
  - Urinary tract infection [Fatal]
  - Renal failure [Fatal]
